FAERS Safety Report 19745929 (Version 1)
Quarter: 2021Q3

REPORT INFORMATION
  Report Type: Spontaneous
  Country: US (occurrence: US)
  Receive Date: 20210824
  Receipt Date: 20210824
  Transmission Date: 20211014
  Serious: Yes (Other)
  Sender: FDA-Public Use
  Company Number: None

PATIENT
  Age: 56 Year
  Sex: Female
  Weight: 105.3 kg

DRUGS (17)
  1. ESTRADIOL. [Concomitant]
     Active Substance: ESTRADIOL
  2. SPIRIVA RESPIMAT [Concomitant]
     Active Substance: TIOTROPIUM BROMIDE
  3. TORSEMIDE. [Concomitant]
     Active Substance: TORSEMIDE
  4. METHYL PREDNISONE 4MG GREENSTONE LLC [Suspect]
     Active Substance: METHYLPREDNISOLONE
     Indication: ADRENAL INSUFFICIENCY
     Dosage: ?          QUANTITY:1 TABLET(S); AS DIRECTED ON THE PACK?
     Route: 048
     Dates: start: 20210713, end: 20210824
  5. GAMUNEX?C [Concomitant]
     Active Substance: HUMAN IMMUNOGLOBULIN G
  6. IPRATROPIUM BROMIDE + ALBUTEROL SULFATE [Concomitant]
     Active Substance: ALBUTEROL SULFATE\IPRATROPIUM BROMIDE
  7. CONBIVENT RESPIMAT [Concomitant]
  8. TELMISARTAN/HYDROCHLOROTHIAZIDE [Concomitant]
     Active Substance: HYDROCHLOROTHIAZIDE\TELMISARTAN
  9. MOTRIN [Concomitant]
     Active Substance: IBUPROFEN
  10. MEDROL [Concomitant]
     Active Substance: METHYLPREDNISOLONE
     Indication: CUSHING^S SYNDROME
  11. ZOLPIEDEM [Concomitant]
  12. ALPRAZOLAM. [Concomitant]
     Active Substance: ALPRAZOLAM
  13. VITAMIN D3 [Concomitant]
     Active Substance: CHOLECALCIFEROL
  14. GAS?X [Concomitant]
     Active Substance: DIMETHICONE
  15. VITAMIN B12 [Concomitant]
     Active Substance: CYANOCOBALAMIN
  16. MEDROL [Concomitant]
     Active Substance: METHYLPREDNISOLONE
     Indication: ADRENAL INSUFFICIENCY
  17. CYCLOBENZAPRINE. [Concomitant]
     Active Substance: CYCLOBENZAPRINE

REACTIONS (3)
  - Loss of personal independence in daily activities [None]
  - Fatigue [None]
  - Suspected product quality issue [None]

NARRATIVE: CASE EVENT DATE: 20210716
